FAERS Safety Report 20313104 (Version 1)
Quarter: 2022Q1

REPORT INFORMATION
  Report Type: Spontaneous
  Country: US (occurrence: None)
  Receive Date: 20220109
  Receipt Date: 20220109
  Transmission Date: 20220423
  Serious: No
  Sender: FDA-Public Use
  Company Number: 2022A006879

PATIENT
  Age: 27942 Day
  Sex: Male

DRUGS (1)
  1. BRILINTA [Suspect]
     Active Substance: TICAGRELOR
     Indication: Stent placement
     Dosage: 90.0MG ONCE/SINGLE ADMINISTRATION
     Route: 048
     Dates: start: 20191201, end: 20210101

REACTIONS (4)
  - Insomnia [Unknown]
  - Paraesthesia [Unknown]
  - Fatigue [Unknown]
  - Hypoaesthesia [Unknown]

NARRATIVE: CASE EVENT DATE: 20210601
